FAERS Safety Report 9403082 (Version 1)
Quarter: 2013Q3

REPORT INFORMATION
  Report Type: Spontaneous
  Country: US (occurrence: None)
  Receive Date: 20130712
  Receipt Date: 20130712
  Transmission Date: 20140515
  Serious: Yes (Other)
  Sender: FDA-Public Use
  Company Number: 2013AP006567

PATIENT
  Age: 44 Year
  Sex: Male

DRUGS (1)
  1. PRAMIPEXOLE DIHYDROCHLORIDE [Suspect]
     Indication: PARKINSON^S DISEASE

REACTIONS (5)
  - Impulse-control disorder [None]
  - Drug abuse [None]
  - Anxiety [None]
  - Compulsive hoarding [None]
  - Pathological gambling [None]
